FAERS Safety Report 7794619-8 (Version None)
Quarter: 2011Q4

REPORT INFORMATION
  Report Type: 
  Country: None (occurrence: None)
  Receive Date: 20111003
  Receipt Date: 20111003
  Transmission Date: 20120403
  Serious: Yes (Hospitalization)
  Sender: FDA-Public Use
  Company Number: None

PATIENT
  Age: 76 Year
  Sex: Male

DRUGS (1)
  1. HYDROCHLOROTHIAZIDE [Suspect]
     Dosage: MG PO
     Route: 048
     Dates: start: 20110526

REACTIONS (2)
  - HYPONATRAEMIA [None]
  - MENTAL STATUS CHANGES [None]
